FAERS Safety Report 9360310 (Version 1)
Quarter: 2013Q2

REPORT INFORMATION
  Report Type: Spontaneous
  Country: IN (occurrence: IN)
  Receive Date: 20130621
  Receipt Date: 20130621
  Transmission Date: 20140414
  Serious: Yes (Hospitalization)
  Sender: FDA-Public Use
  Company Number: IN-SUN PHARMACEUTICAL INDUSTRIES LTD-2013SUN00830

PATIENT
  Age: 69 Year
  Sex: Male

DRUGS (5)
  1. ATENOLOL 25 MG TABLET [Suspect]
     Indication: HYPERTENSION
     Dosage: 25 MG, OD
     Route: 065
  2. DICLOFENAC/SERRAPEPTASE [Interacting]
     Indication: POSTOPERATIVE ANALGESIA
     Dosage: 50MG/10MG, TID
     Route: 065
  3. RANITIDINE [Concomitant]
     Dosage: 150 MG, BID
  4. AMPICILLIN [Concomitant]
     Dosage: 250 MG, TID
  5. CLOXACILLIN [Concomitant]
     Dosage: 250 MG, TID

REACTIONS (3)
  - Drug interaction [Recovering/Resolving]
  - Renal failure acute [Recovering/Resolving]
  - Blood sodium decreased [None]
